FAERS Safety Report 4660172-0 (Version None)
Quarter: 2005Q2

REPORT INFORMATION
  Report Type: 
  Country: None (occurrence: None)
  Receive Date: 20050427
  Receipt Date: 20050127
  Transmission Date: 20051028
  Serious: No
  Sender: FDA-Public Use
  Company Number: 212059

PATIENT
  Age: 51 Year
  Sex: Female
  Weight: 102 kg

DRUGS (4)
  1. XOLAIR [Suspect]
     Indication: ASTHMA
     Dosage: 1/MONTH, SUBCUTANEOUS
     Route: 058
     Dates: start: 20040325, end: 20040521
  2. ADVAIR (FLUTICASONE PROPIONATE, SALMETEROL XINAFOATE) [Concomitant]
  3. METHOTREXATE [Concomitant]
  4. THEOPHYLLINE [Concomitant]

REACTIONS (1)
  - SWELLING FACE [None]
